FAERS Safety Report 7609753-2 (Version None)
Quarter: 2011Q3

REPORT INFORMATION
  Report Type: 
  Country: None (occurrence: None)
  Receive Date: 20110714
  Receipt Date: 20110708
  Transmission Date: 20111222
  Serious: Yes (Other)
  Sender: FDA-Public Use
  Company Number: FR-CEPHALON-2011003521

PATIENT
  Sex: Female

DRUGS (2)
  1. MODAFINIL [Suspect]
     Indication: NARCOLEPSY
     Route: 048
     Dates: start: 20050101
  2. LEVONORGESTREL + ETHINYL ESTRADIOL [Suspect]
     Dates: start: 20080101

REACTIONS (3)
  - HYPERTENSION [None]
  - DRUG PRESCRIBING ERROR [None]
  - HEPATIC FUNCTION ABNORMAL [None]
